FAERS Safety Report 19216421 (Version 4)
Quarter: 2021Q2

REPORT INFORMATION
  Report Type: Spontaneous
  Country: GB (occurrence: GB)
  Receive Date: 20210505
  Receipt Date: 20210525
  Transmission Date: 20210717
  Serious: Yes (Other)
  Sender: FDA-Public Use
  Company Number: GB-MYLANLABS-2021M1013658

PATIENT
  Age: 45 Year
  Sex: Female
  Weight: 78.2 kg

DRUGS (7)
  1. CLOZARIL [Suspect]
     Active Substance: CLOZAPINE
     Dosage: 12.5 MILLIGRAM, PM (NOCTE)
     Route: 048
     Dates: start: 20210428, end: 20210502
  2. CLOZARIL [Suspect]
     Active Substance: CLOZAPINE
     Dosage: 50 MILLIGRAM, AM (MANE)
     Route: 048
     Dates: start: 20210216, end: 20210225
  3. RISPERIDONE. [Concomitant]
     Active Substance: RISPERIDONE
     Dosage: 4 MILLIGRAM, PM (NOCTE)
     Route: 048
     Dates: start: 20210118, end: 20210215
  4. CLOZARIL [Suspect]
     Active Substance: CLOZAPINE
     Dosage: 75 MILLIGRAM, PM (NOCTE)
     Route: 048
     Dates: start: 20210216, end: 20210225
  5. RISPERIDONE. [Concomitant]
     Active Substance: RISPERIDONE
     Dosage: 4 MILLIGRAM, PM (NOCTE)
     Route: 048
     Dates: start: 20210302, end: 20210504
  6. CLOZARIL [Suspect]
     Active Substance: CLOZAPINE
     Indication: SCHIZOPHRENIA
     Dosage: UNK
     Route: 048
     Dates: start: 20210212, end: 2021
  7. RISPERIDONE. [Concomitant]
     Active Substance: RISPERIDONE
     Dosage: 3 MILLIGRAM, PM (NOCTE)
     Route: 048
     Dates: start: 20210216, end: 20210301

REACTIONS (6)
  - Troponin I increased [Recovered/Resolved]
  - Eosinophilia [Unknown]
  - Myocarditis [Recovered/Resolved]
  - C-reactive protein increased [Unknown]
  - Drug ineffective [Unknown]
  - Off label use [Unknown]

NARRATIVE: CASE EVENT DATE: 2021
